FAERS Safety Report 5340574-X (Version None)
Quarter: 2007Q2

REPORT INFORMATION
  Report Type: 
  Country: None (occurrence: None)
  Receive Date: 20070405
  Receipt Date: 20070129
  Transmission Date: 20071010
  Serious: No
  Sender: FDA-Public Use
  Company Number: US200701005599

PATIENT
  Sex: Female

DRUGS (6)
  1. FORTEO [Suspect]
     Indication: RESORPTION BONE INCREASED
     Dates: start: 20060817
  2. CYMBALTA [Suspect]
  3. FORTEO PEN (TERIPARATIDE) PEN, DISPOSABLE [Concomitant]
  4. LEVOTHYROXINE SODIUM [Concomitant]
  5. PREVACID [Concomitant]
  6. BUSPIRON (BUSPIRONE HYDROCHLORIDE) [Concomitant]

REACTIONS (2)
  - RASH [None]
  - SCAR [None]
